FAERS Safety Report 5641556-0 (Version None)
Quarter: 2008Q1

REPORT INFORMATION
  Report Type: 
  Country: None (occurrence: None)
  Receive Date: 20080227
  Receipt Date: 20071102
  Transmission Date: 20080703
  Serious: No
  Sender: FDA-Public Use
  Company Number: A0691218A

PATIENT
  Age: 41 Year
  Sex: Female

DRUGS (2)
  1. NICORETTE [Suspect]
  2. NICORETTE [Suspect]
     Dates: start: 20071027

REACTIONS (8)
  - CHEST PAIN [None]
  - DIZZINESS [None]
  - EAR PAIN [None]
  - HEADACHE [None]
  - HICCUPS [None]
  - INTENTIONAL DRUG MISUSE [None]
  - NICOTINE DEPENDENCE [None]
  - PALPITATIONS [None]
